FAERS Safety Report 5989629-7 (Version None)
Quarter: 2008Q4

REPORT INFORMATION
  Report Type: 
  Country: None (occurrence: None)
  Receive Date: 20081205
  Receipt Date: 20081124
  Transmission Date: 20090506
  Serious: Yes (Hospitalization)
  Sender: FDA-Public Use
  Company Number: 231614K08USA

PATIENT
  Age: 59 Year
  Sex: Female
  Weight: 106 kg

DRUGS (10)
  1. REBIF [Suspect]
     Indication: MULTIPLE SCLEROSIS
     Dosage: 44 MCG, 3 IN 1 WEEKS, SUBCUTANEOUS
     Route: 058
     Dates: start: 20080324
  2. STEROIDS(CORITCOSTEROID NOS) [Suspect]
     Indication: MULTIPLE SCLEROSIS
     Dates: start: 20081105, end: 20081107
  3. REQUIP [Concomitant]
  4. NIFEDIPINE [Concomitant]
  5. LEXAPRO [Concomitant]
  6. LYSINE [Concomitant]
  7. GABAPENTIN [Concomitant]
  8. ACTONEL [Concomitant]
  9. CALCIUM (CALCIUM-SANDOZ) [Concomitant]
  10. ASPIRIN [Concomitant]

REACTIONS (4)
  - CONDITION AGGRAVATED [None]
  - FATIGUE [None]
  - MULTIPLE SCLEROSIS [None]
  - PULMONARY EMBOLISM [None]
